FAERS Safety Report 21065753 (Version 1)
Quarter: 2022Q3

REPORT INFORMATION
  Report Type: Spontaneous
  Country: DE (occurrence: DE)
  Receive Date: 20220711
  Receipt Date: 20220711
  Transmission Date: 20221027
  Serious: Yes (Other)
  Sender: FDA-Public Use
  Company Number: DE-JAZZ-2022-DE-022918

PATIENT
  Age: 30 Year
  Weight: 60 kg

DRUGS (2)
  1. DEFITELIO [Suspect]
     Active Substance: DEFIBROTIDE SODIUM
     Indication: Venoocclusive disease
     Dosage: 1600 MILLIGRAM/DAY
     Dates: start: 20170929
  2. DEFITELIO [Suspect]
     Active Substance: DEFIBROTIDE SODIUM
     Dosage: 800 MILLIGRAM / DAY

REACTIONS (2)
  - Hepatitis [Unknown]
  - Haemangioma [Unknown]
